FAERS Safety Report 7418658-1 (Version None)
Quarter: 2011Q2

REPORT INFORMATION
  Report Type: 
  Country: None (occurrence: None)
  Receive Date: 20110415
  Receipt Date: 20110413
  Transmission Date: 20111010
  Serious: Yes (Other)
  Sender: FDA-Public Use
  Company Number: BR-PFIZER INC-2011081449

PATIENT
  Age: 25 Year
  Sex: Female
  Weight: 69 kg

DRUGS (1)
  1. DOSTINEX [Suspect]
     Indication: BLOOD PROLACTIN ABNORMAL
     Dosage: 0.5 MG, 1 TABLET EVERY 10 DAYS
     Route: 048
     Dates: start: 19890101

REACTIONS (3)
  - THYROID DISORDER [None]
  - BLOOD PROLACTIN ABNORMAL [None]
  - HEADACHE [None]
